FAERS Safety Report 17547879 (Version 2)
Quarter: 2020Q2

REPORT INFORMATION
  Report Type: Report from Study
  Country: None (occurrence: US)
  Receive Date: 20200317
  Receipt Date: 20200402
  Transmission Date: 20200713
  Serious: Yes (Hospitalization, Other)
  Sender: FDA-Public Use
  Company Number: US-ABBVIE-20K-163-3311450-00

PATIENT
  Sex: Male
  Weight: 45.4 kg

DRUGS (1)
  1. HUMIRA [Suspect]
     Active Substance: ADALIMUMAB
     Indication: INFECTION
     Dosage: CITRATE FREE
     Route: 058

REACTIONS (6)
  - Pelvic infection [Unknown]
  - Gastrointestinal oedema [Unknown]
  - Medical device implantation [Unknown]
  - Hospitalisation [Unknown]
  - Neoplasm malignant [Unknown]
  - Haemorrhage [Unknown]
